FAERS Safety Report 10275107 (Version 5)
Quarter: 2015Q3

REPORT INFORMATION
  Report Type: Spontaneous
  Country: JP (occurrence: JP)
  Receive Date: 20140703
  Receipt Date: 20150812
  Transmission Date: 20151125
  Serious: Yes (Death, Other)
  Sender: FDA-Public Use
  Company Number: JP-009507513-1406JPN012337

PATIENT
  Age: 83 Year
  Sex: Male
  Weight: 35 kg

DRUGS (6)
  1. ELNEOPA NO. 2 [Concomitant]
     Active Substance: UNSPECIFIED INGREDIENT
     Indication: MALNUTRITION
     Dosage: 1 L, QD
     Route: 042
     Dates: start: 20131224, end: 20140101
  2. OMEPRAZOLE. [Concomitant]
     Active Substance: OMEPRAZOLE
     Indication: GASTRIC ULCER
     Dosage: 20 MG, BID
     Route: 042
     Dates: start: 20131224, end: 20140101
  3. SOLACET D [Concomitant]
     Indication: DEHYDRATION
     Dosage: 500 ML, QD
     Route: 042
     Dates: start: 20131224, end: 20131227
  4. SOL MELCORT [Concomitant]
     Active Substance: METHYLPREDNISOLONE
     Indication: SEPSIS
     Dosage: 40 ML, QD
     Route: 042
     Dates: start: 20131224, end: 20140101
  5. CANCIDAS [Suspect]
     Active Substance: CASPOFUNGIN ACETATE
     Indication: SYSTEMIC CANDIDA
     Dosage: 50 MG, QD
     Route: 041
     Dates: start: 20131225, end: 20131231
  6. CANCIDAS [Suspect]
     Active Substance: CASPOFUNGIN ACETATE
     Indication: SYSTEMIC CANDIDA
     Dosage: 70 MG, QD
     Route: 041
     Dates: start: 20131224, end: 20131224

REACTIONS (2)
  - Neutrophil count increased [Not Recovered/Not Resolved]
  - Cholangiocarcinoma [Fatal]

NARRATIVE: CASE EVENT DATE: 20131225
